FAERS Safety Report 24651629 (Version 2)
Quarter: 2025Q1

REPORT INFORMATION
  Report Type: Spontaneous
  Country: JP (occurrence: JP)
  Receive Date: 20241122
  Receipt Date: 20250123
  Transmission Date: 20250408
  Serious: Yes (Other)
  Sender: ASTELLAS
  Company Number: JP-ASTELLAS-2024JP001875

PATIENT
  Age: 76 Year
  Sex: Male

DRUGS (8)
  1. PADCEV [Suspect]
     Active Substance: ENFORTUMAB VEDOTIN-EJFV
     Indication: Metastases to lung
     Route: 065
     Dates: start: 2022
  2. PADCEV [Suspect]
     Active Substance: ENFORTUMAB VEDOTIN-EJFV
     Indication: Bladder cancer
  3. PADCEV [Suspect]
     Active Substance: ENFORTUMAB VEDOTIN-EJFV
     Indication: Malignant neoplasm progression
  4. PACLITAXEL [Concomitant]
     Active Substance: PACLITAXEL
     Indication: Metastases to lung
     Route: 065
     Dates: start: 2021, end: 2022
  5. PACLITAXEL [Concomitant]
     Active Substance: PACLITAXEL
     Indication: Bladder cancer
  6. GEMCITABINE [Concomitant]
     Active Substance: GEMCITABINE
     Indication: Metastases to lung
     Route: 065
     Dates: start: 2018, end: 2018
  7. GEMCITABINE [Concomitant]
     Active Substance: GEMCITABINE
     Indication: Bladder cancer
     Route: 065
     Dates: start: 2020, end: 2021
  8. GEMCITABINE [Concomitant]
     Active Substance: GEMCITABINE
     Route: 065
     Dates: start: 2021, end: 2022

REACTIONS (5)
  - Malignant neoplasm progression [Unknown]
  - Metastases to adrenals [Unknown]
  - Metastases to lung [Unknown]
  - Metastases to lung [Unknown]
  - Drug ineffective [Unknown]

NARRATIVE: CASE EVENT DATE: 20220101
